FAERS Safety Report 20149639 (Version 1)
Quarter: 2021Q4

REPORT INFORMATION
  Report Type: Spontaneous
  Country: CA (occurrence: CA)
  Receive Date: 20211206
  Receipt Date: 20211206
  Transmission Date: 20220303
  Serious: Yes (Other)
  Sender: FDA-Public Use
  Company Number: CA-ALVOGEN-2021-ALVOGEN-117857

PATIENT
  Age: 64 Year
  Sex: Male

DRUGS (3)
  1. DEXAMETHASONE [Suspect]
     Active Substance: DEXAMETHASONE
     Indication: Chronic lymphocytic leukaemia
     Dosage: ON DAYS 1-4 OF EACH CYCLE
  2. IBRUTINIB [Suspect]
     Active Substance: IBRUTINIB
     Indication: Chronic lymphocytic leukaemia
     Dosage: FOR 2 MONTHS
  3. RUXOLITINIB [Suspect]
     Active Substance: RUXOLITINIB
     Indication: Chronic lymphocytic leukaemia
     Dosage: TWICE A DAY ON DAYS 1-21 OF EACH CYCLE

REACTIONS (4)
  - Withdrawal syndrome [Unknown]
  - Neutropenia [Recovered/Resolved]
  - Mean cell volume increased [Unknown]
  - Blood lactate dehydrogenase increased [Unknown]
